FAERS Safety Report 6735195-8 (Version None)
Quarter: 2010Q2

REPORT INFORMATION
  Report Type: 
  Country: None (occurrence: None)
  Receive Date: 20100521
  Receipt Date: 20100518
  Transmission Date: 20101027
  Serious: Yes (Other)
  Sender: FDA-Public Use
  Company Number: US-BAYER-201022931NA

PATIENT
  Age: 58 Year
  Sex: Female

DRUGS (1)
  1. BETASERON [Suspect]
     Indication: MULTIPLE SCLEROSIS
     Route: 058
     Dates: start: 20100211, end: 20100420

REACTIONS (4)
  - HEPATIC ENZYME INCREASED [None]
  - PRURITUS [None]
  - RASH [None]
  - STAPHYLOCOCCAL INFECTION [None]
